FAERS Safety Report 16926221 (Version 3)
Quarter: 2021Q4

REPORT INFORMATION
  Report Type: Report from Study
  Country: FR (occurrence: FR)
  Receive Date: 20191016
  Receipt Date: 20211015
  Transmission Date: 20220303
  Serious: Yes (Hospitalization)
  Sender: FDA-Public Use
  Company Number: FR-PFIZER INC-2019404945

PATIENT
  Age: 3 Year
  Sex: Female
  Weight: 16 kg

DRUGS (7)
  1. CRIZOTINIB [Suspect]
     Active Substance: CRIZOTINIB
     Indication: Brain sarcoma
     Dosage: 128 MG, UNK
     Route: 048
     Dates: start: 20171116
  2. CRIZOTINIB [Suspect]
     Active Substance: CRIZOTINIB
     Dosage: 170 MG, DAILY
     Route: 048
     Dates: start: 20181121, end: 20190914
  3. MINIRIN [Concomitant]
     Active Substance: DESMOPRESSIN ACETATE
     Indication: Diabetes mellitus
     Dosage: UNK
     Route: 048
     Dates: start: 201710
  4. HYDROCORTISONE [Concomitant]
     Active Substance: HYDROCORTISONE
     Indication: Blood corticotrophin decreased
     Dosage: UNK
     Route: 048
     Dates: start: 201710
  5. KEPPRA [Concomitant]
     Active Substance: LEVETIRACETAM
     Indication: Seizure
     Dosage: UNK
     Route: 048
     Dates: start: 201710
  6. LIORESAL [Concomitant]
     Active Substance: BACLOFEN
     Indication: Muscle relaxant therapy
     Dosage: UNK
     Route: 048
     Dates: start: 201710
  7. POLYETHYLENE GLYCOL 4000 [Concomitant]
     Active Substance: POLYETHYLENE GLYCOL 4000
     Indication: Constipation
     Dosage: UNK
     Route: 048
     Dates: start: 2019

REACTIONS (1)
  - Gastrointestinal perforation [Recovered/Resolved]

NARRATIVE: CASE EVENT DATE: 20190914
